FAERS Safety Report 14233934 (Version 5)
Quarter: 2018Q2

REPORT INFORMATION
  Report Type: Report from Study
  Country: None (occurrence: DE)
  Receive Date: 20171128
  Receipt Date: 20180627
  Transmission Date: 20180711
  Serious: Yes (Other)
  Sender: FDA-Public Use
  Company Number: DE-ABBVIE-17P-062-2171015-00

PATIENT
  Age: 41 Year
  Sex: Male
  Weight: 93 kg

DRUGS (4)
  1. MIRTAZAPIN [Concomitant]
     Active Substance: MIRTAZAPINE
     Indication: PRODUCT USED FOR UNKNOWN INDICATION
     Dates: start: 20170711
  2. ESCITALOPRAM [Concomitant]
     Active Substance: ESCITALOPRAM OXALATE
     Indication: DEPENDENCE
     Dates: start: 20180327
  3. QUETIAPINE. [Concomitant]
     Active Substance: QUETIAPINE
     Indication: DEPENDENCE
     Dates: start: 20180327
  4. MAVIRET [Suspect]
     Active Substance: GLECAPREVIR\PIBRENTASVIR
     Indication: CHRONIC HEPATITIS C
     Route: 048
     Dates: start: 20171023, end: 20171217

REACTIONS (5)
  - Abscess limb [Recovered/Resolved]
  - Dependence [Unknown]
  - Bronchitis [Recovered/Resolved]
  - Pneumonia bacterial [Recovered/Resolved]
  - Drug abuse [Unknown]

NARRATIVE: CASE EVENT DATE: 20171113
